FAERS Safety Report 10041424 (Version 1)
Quarter: 2014Q1

REPORT INFORMATION
  Report Type: Spontaneous
  Country: GB (occurrence: GB)
  Receive Date: 20140327
  Receipt Date: 20140327
  Transmission Date: 20141002
  Serious: Yes (Other)
  Sender: FDA-Public Use
  Company Number: GB-WATSON-2014-05471

PATIENT
  Age: 51 Year
  Sex: Male
  Weight: 47 kg

DRUGS (6)
  1. MIRTAZAPINE (UNKNOWN) [Suspect]
     Indication: DEPRESSION
     Dosage: 45 MG, DAILY
     Route: 048
     Dates: start: 20040630, end: 20140204
  2. VITAMIN B COMPOUND                 /00171501/ [Concomitant]
     Indication: INADEQUATE DIET
     Dosage: 1 DF, TID; ONGOING
     Route: 048
     Dates: start: 20131029
  3. LITHIUM CARBONATE [Concomitant]
     Indication: DEPRESSION
     Dosage: 400 MG, DAILY; ONGOING
     Route: 048
     Dates: start: 20040114
  4. THIAMINE [Concomitant]
     Indication: INADEQUATE DIET
     Dosage: 100 MG, DAILY; ONGOING
     Route: 048
     Dates: start: 20131029
  5. FERROUS FUMARATE [Concomitant]
     Indication: ANAEMIA
     Dosage: 305 MG, BID; ONGOING
     Route: 048
     Dates: start: 20131029
  6. FOLIC ACID [Concomitant]
     Indication: ANAEMIA
     Dosage: 5 MG, UNKNOWN; ONGOING
     Route: 048
     Dates: start: 20131029

REACTIONS (2)
  - Liver function test abnormal [Recovering/Resolving]
  - Weight decreased [Unknown]
